FAERS Safety Report 18110999 (Version 2)
Quarter: 2020Q3

REPORT INFORMATION
  Report Type: Spontaneous
  Country: US (occurrence: US)
  Receive Date: 20200805
  Receipt Date: 20200912
  Transmission Date: 20201103
  Serious: No
  Sender: FDA-Public Use
  Company Number: US-ASTRAZENECA-2020SE87401

PATIENT
  Sex: Female
  Weight: 59 kg

DRUGS (1)
  1. FASENRA [Suspect]
     Active Substance: BENRALIZUMAB
     Indication: ASTHMA
     Dosage: 30MG/ML EVERY EIGHT WEEKS
     Route: 058
     Dates: start: 2018

REACTIONS (3)
  - Incorrect dose administered by device [Unknown]
  - Injection site pain [Unknown]
  - Device leakage [Unknown]
